FAERS Safety Report 7391731-2 (Version None)
Quarter: 2011Q2

REPORT INFORMATION
  Report Type: 
  Country: None (occurrence: None)
  Receive Date: 20110404
  Receipt Date: 20110325
  Transmission Date: 20111010
  Serious: Yes (Other)
  Sender: FDA-Public Use
  Company Number: FR-AMGEN-FRASP2011016065

PATIENT
  Age: 52 Year
  Sex: Male

DRUGS (1)
  1. ARANESP [Suspect]
     Indication: RENAL FAILURE CHRONIC
     Dosage: 150 A?G, UNK
     Route: 058
     Dates: end: 20101107

REACTIONS (2)
  - POLYCYTHAEMIA [None]
  - INTRACARDIAC THROMBUS [None]
